FAERS Safety Report 7414798-1 (Version None)
Quarter: 2011Q2

REPORT INFORMATION
  Report Type: 
  Country: None (occurrence: None)
  Receive Date: 20110414
  Receipt Date: 20100308
  Transmission Date: 20111010
  Serious: No
  Sender: FDA-Public Use
  Company Number: A0848891A

PATIENT
  Age: 81 Year
  Sex: Female

DRUGS (2)
  1. GABAPENTIN [Concomitant]
  2. LUXIQ [Suspect]
     Dosage: 1APP TWICE PER DAY
     Route: 061
     Dates: start: 20100201

REACTIONS (7)
  - ERYTHEMA [None]
  - LACERATION [None]
  - DRUG ADMINISTRATION ERROR [None]
  - PRODUCT QUALITY ISSUE [None]
  - SKIN CHAPPED [None]
  - BURNING SENSATION [None]
  - PAIN IN EXTREMITY [None]
